FAERS Safety Report 6414718-2 (Version None)
Quarter: 2009Q4

REPORT INFORMATION
  Report Type: 
  Country: None (occurrence: None)
  Receive Date: 20091026
  Receipt Date: 20091026
  Transmission Date: 20100525
  Serious: Yes (Other)
  Sender: FDA-Public Use
  Company Number: None

PATIENT
  Sex: Female
  Weight: 56.6996 kg

DRUGS (2)
  1. LEVAQUIN [Suspect]
     Indication: HUMAN EHRLICHIOSIS
     Dosage: 500MG 1 TAB DAILY BY MOUTH
     Route: 048
     Dates: start: 20090814, end: 20090823
  2. LEVAQUIN [Suspect]
     Indication: HUMAN EHRLICHIOSIS
     Dosage: 500MG 1 TAB DAILY BY MOUTH
     Route: 048
     Dates: start: 20090904, end: 20090908

REACTIONS (5)
  - ARTHRALGIA [None]
  - MUSCULOSKELETAL STIFFNESS [None]
  - OEDEMA PERIPHERAL [None]
  - PAIN [None]
  - PAIN IN EXTREMITY [None]
